FAERS Safety Report 9521666 (Version 31)
Quarter: 2018Q2

REPORT INFORMATION
  Report Type: Report from Study
  Country: CA (occurrence: CA)
  Receive Date: 20130913
  Receipt Date: 20180625
  Transmission Date: 20180711
  Serious: Yes (Hospitalization, Other)
  Sender: FDA-Public Use
  Company Number: PHHY2013CA088484

PATIENT
  Age: 24 Year
  Sex: Male

DRUGS (3)
  1. SANDOSTATIN [Suspect]
     Active Substance: OCTREOTIDE ACETATE
     Indication: NEUROENDOCRINE TUMOUR
     Dosage: 50 UG, ONCE/SINGLE
     Route: 058
     Dates: start: 20130801, end: 20130801
  2. SANDOSTATIN LAR DEPOT [Suspect]
     Active Substance: OCTREOTIDE ACETATE
     Dosage: 30 MG, TIW
     Route: 030
  3. SANDOSTATIN LAR DEPOT [Suspect]
     Active Substance: OCTREOTIDE ACETATE
     Indication: NEUROENDOCRINE TUMOUR
     Dosage: 30 MG, QMO, EVERY 4 WEEKS
     Route: 030
     Dates: start: 20130813

REACTIONS (37)
  - Fear [Unknown]
  - Frustration tolerance decreased [Unknown]
  - Insomnia [Unknown]
  - Underdose [Unknown]
  - Abdominal pain upper [Unknown]
  - Depressed mood [Unknown]
  - Product use issue [Unknown]
  - Body temperature decreased [Unknown]
  - Rales [Unknown]
  - Rash pruritic [Unknown]
  - Faeces discoloured [Unknown]
  - Anxiety [Unknown]
  - Dysphagia [Unknown]
  - Blood pressure diastolic decreased [Unknown]
  - Blood pressure diastolic increased [Unknown]
  - Feeling abnormal [Unknown]
  - Wheezing [Unknown]
  - Vomiting [Unknown]
  - Hepatic neoplasm [Unknown]
  - Lung neoplasm [Unknown]
  - Weight decreased [Unknown]
  - Pain [Unknown]
  - Abdominal pain [Recovered/Resolved]
  - Diarrhoea [Unknown]
  - Rash macular [Recovered/Resolved]
  - Steatorrhoea [Unknown]
  - Gallbladder disorder [Unknown]
  - Abnormal behaviour [Unknown]
  - Syringe issue [Unknown]
  - Flatulence [Not Recovered/Not Resolved]
  - Decreased appetite [Recovered/Resolved]
  - Syncope [Recovering/Resolving]
  - Carcinoid syndrome [Unknown]
  - Circulatory collapse [Unknown]
  - Blood pressure increased [Unknown]
  - Developmental delay [Unknown]
  - Flushing [Unknown]

NARRATIVE: CASE EVENT DATE: 20140225
